FAERS Safety Report 22381122 (Version 1)
Quarter: 2023Q2

REPORT INFORMATION
  Report Type: Spontaneous
  Country: US (occurrence: US)
  Receive Date: 20230530
  Receipt Date: 20230530
  Transmission Date: 20230721
  Serious: Yes (Other)
  Sender: FDA-Public Use
  Company Number: US-SUN PHARMACEUTICAL INDUSTRIES LTD-2023R1-391400

PATIENT
  Age: 63 Year
  Sex: Male

DRUGS (4)
  1. OLANZAPINE [Suspect]
     Active Substance: OLANZAPINE
     Indication: Bipolar disorder
     Dosage: 20 MILLIGRAM, DAILY
     Route: 065
     Dates: start: 201912
  2. AVAPRITINIB [Suspect]
     Active Substance: AVAPRITINIB
     Indication: Gastrointestinal stromal tumour
     Dosage: 300 MILLIGRAM, DAILY
     Route: 005
     Dates: start: 202003
  3. AVAPRITINIB [Suspect]
     Active Substance: AVAPRITINIB
     Dosage: 200 MILLIGRAM, DAILY
     Route: 005
     Dates: start: 202003
  4. AVAPRITINIB [Suspect]
     Active Substance: AVAPRITINIB
     Dosage: 100 MILLIGRAM, DAILY
     Route: 005
     Dates: start: 202003

REACTIONS (1)
  - Disease progression [Unknown]
